FAERS Safety Report 23969813 (Version 2)
Quarter: 2024Q2

REPORT INFORMATION
  Report Type: Report from Study
  Country: BR (occurrence: BR)
  Receive Date: 20240613
  Receipt Date: 20240619
  Transmission Date: 20240716
  Serious: Yes (Hospitalization, Other)
  Sender: FDA-Public Use
  Company Number: BR-CELLTRION INC.-2024BR013746

PATIENT

DRUGS (9)
  1. INFLIXIMAB [Suspect]
     Active Substance: INFLIXIMAB
     Indication: Crohn^s disease
     Dosage: 4 AMPOULES EVERY 4 WEEKS
     Route: 042
     Dates: start: 20220711
  2. INFLIXIMAB [Suspect]
     Active Substance: INFLIXIMAB
     Dosage: 5 AMPOULES EVERY 4 WEEKS
     Route: 042
     Dates: start: 20240521
  3. AZATHIOPRINE [Concomitant]
     Active Substance: AZATHIOPRINE
     Indication: Crohn^s disease
     Dosage: 3 PILL A DAY; 7 YEARS AGO
     Route: 048
  4. BUDESONIDE [Concomitant]
     Active Substance: BUDESONIDE
     Indication: Crohn^s disease
     Dosage: 1 PILL A DAY; 3 MONTHS AGO
     Route: 048
  5. IRON POLYMALTOSE [Concomitant]
     Active Substance: IRON POLYMALTOSE
     Indication: Supplementation therapy
     Dosage: 1 AMPOULE PER WEEK; 7 YEARS AGO
     Route: 042
  6. VITAMIN B12 [Concomitant]
     Active Substance: CYANOCOBALAMIN
     Indication: Supplementation therapy
     Dosage: 3 AMPOULES PER MONTH; 7 YEARS AGO
     Route: 042
  7. PANTOPRAZOLE [Concomitant]
     Active Substance: PANTOPRAZOLE
     Indication: Gastritis prophylaxis
     Dosage: 1 PILL A DAY; 7 YEARS AGO
     Route: 048
  8. DOMPERIDONE [Concomitant]
     Active Substance: DOMPERIDONE
     Indication: Gastritis prophylaxis
     Dosage: 1 PILL A DAY; 7 YEARS AGO
     Route: 048
  9. SERTRALINE [Concomitant]
     Active Substance: SERTRALINE HYDROCHLORIDE
     Indication: Anxiety
     Dosage: 1 PILL A DAY; 2 YEARS AGO
     Route: 048

REACTIONS (6)
  - Fistulotomy [Recovering/Resolving]
  - Anal fistula [Recovering/Resolving]
  - Weight increased [Unknown]
  - Symptom recurrence [Unknown]
  - Malaise [Unknown]
  - Product supply issue [Unknown]

NARRATIVE: CASE EVENT DATE: 20240429
